FAERS Safety Report 5401101-1 (Version None)
Quarter: 2007Q3

REPORT INFORMATION
  Report Type: 
  Country: None (occurrence: None)
  Receive Date: 20070731
  Receipt Date: 20070726
  Transmission Date: 20080115
  Serious: Yes (Other)
  Sender: FDA-Public Use
  Company Number: PHEH2007US07889

PATIENT
  Age: 48 Year
  Sex: Female

DRUGS (1)
  1. ZELNORM [Suspect]
     Indication: DIVERTICULITIS
     Dosage: 6 MG, BID
     Route: 048
     Dates: start: 20050101

REACTIONS (4)
  - CHEST PAIN [None]
  - ENDOSCOPY ABNORMAL [None]
  - GASTRIC HAEMORRHAGE [None]
  - HELICOBACTER INFECTION [None]
